FAERS Safety Report 14757112 (Version 2)
Quarter: 2025Q3

REPORT INFORMATION
  Report Type: Spontaneous
  Country: EU (occurrence: EU)
  Receive Date: 20180413
  Receipt Date: 20250821
  Transmission Date: 20251021
  Serious: Yes (Death, Hospitalization, Other)
  Sender: AUROBINDO
  Company Number: EU-AUROBINDO-AUR-APL-2018-019715

PATIENT
  Age: 63 Year

DRUGS (4)
  1. PREDNISONE [Suspect]
     Active Substance: PREDNISONE
     Indication: Immunosuppression
     Route: 065
  2. PREDNISONE [Suspect]
     Active Substance: PREDNISONE
     Indication: IgA nephropathy
  3. CYCLOSPORINE [Suspect]
     Active Substance: CYCLOSPORINE
     Indication: Immunosuppression
     Route: 065
  4. CYCLOSPORINE [Suspect]
     Active Substance: CYCLOSPORINE
     Indication: IgA nephropathy

REACTIONS (9)
  - Cerebral haemorrhage [Fatal]
  - Pseudomonas aeruginosa meningitis [Fatal]
  - Pneumonia [Fatal]
  - Pyrexia [Fatal]
  - Depressed level of consciousness [Fatal]
  - CSF white blood cell count increased [Fatal]
  - CSF protein increased [Fatal]
  - Subarachnoid haemorrhage [Fatal]
  - Partial seizures [Fatal]
